FAERS Safety Report 23883079 (Version 2)
Quarter: 2024Q2

REPORT INFORMATION
  Report Type: Spontaneous
  Country: IN (occurrence: IN)
  Receive Date: 20240522
  Receipt Date: 20240529
  Transmission Date: 20240716
  Serious: Yes (Hospitalization, Other)
  Sender: FDA-Public Use
  Company Number: None

PATIENT
  Age: 18 Year
  Sex: Female

DRUGS (6)
  1. TACROLIMUS [Suspect]
     Active Substance: TACROLIMUS
     Indication: Immunosuppressant drug therapy
     Dosage: 0.1 MILLIGRAM/KILOGRAM
     Route: 065
  2. TACROLIMUS [Suspect]
     Active Substance: TACROLIMUS
     Dosage: 3.5 MILLIGRAM, QD
     Route: 065
  3. TACROLIMUS [Suspect]
     Active Substance: TACROLIMUS
     Dosage: 3 MILLIGRAM, QD
     Route: 065
  4. TACROLIMUS [Suspect]
     Active Substance: TACROLIMUS
     Dosage: 2.5 MILLIGRAM, OD
     Route: 065
  5. MYCOPHENOLATE MOFETIL [Suspect]
     Active Substance: MYCOPHENOLATE MOFETIL
     Indication: Immunosuppressant drug therapy
     Dosage: 600 MILLIGRAM/SQ. METER
     Route: 065
  6. BASILIXIMAB [Suspect]
     Active Substance: BASILIXIMAB
     Indication: Immunosuppressant drug therapy
     Dosage: UNK
     Route: 065

REACTIONS (12)
  - Renal tubular acidosis [Recovered/Resolved]
  - Graft ischaemia [Recovered/Resolved]
  - Renal salt-wasting syndrome [Recovered/Resolved]
  - Chronic allograft nephropathy [Recovered/Resolved]
  - Seizure [Recovered/Resolved]
  - Metabolic acidosis [Recovered/Resolved]
  - Hyponatraemia [Recovered/Resolved]
  - Escherichia infection [Recovered/Resolved]
  - Candida infection [Recovered/Resolved]
  - Renal tubular necrosis [Recovered/Resolved]
  - Transplant dysfunction [Recovered/Resolved]
  - Toxicity to various agents [Recovered/Resolved]
